FAERS Safety Report 19280719 (Version 4)
Quarter: 2021Q2

REPORT INFORMATION
  Report Type: Report from Study
  Country: None (occurrence: US)
  Receive Date: 20210521
  Receipt Date: 20210619
  Transmission Date: 20210717
  Serious: Yes (Hospitalization, Other)
  Sender: FDA-Public Use
  Company Number: US-ABBVIE-21K-163-3913304-00

PATIENT
  Age: 76 Year
  Sex: Male
  Weight: 96.7 kg

DRUGS (12)
  1. DUOPA [Suspect]
     Active Substance: CARBIDOPA\LEVODOPA
     Indication: PRODUCT USED FOR UNKNOWN INDICATION
     Dosage: 4.63 MG/ML 20 MG/ML
     Route: 050
     Dates: start: 20180202
  2. MIDODRINE [Concomitant]
     Active Substance: MIDODRINE
     Indication: PRODUCT USED FOR UNKNOWN INDICATION
     Route: 048
  3. PLAVIX [Concomitant]
     Active Substance: CLOPIDOGREL BISULFATE
     Indication: PRODUCT USED FOR UNKNOWN INDICATION
  4. VITAMIN B12 [Concomitant]
     Active Substance: CYANOCOBALAMIN
     Indication: PRODUCT USED FOR UNKNOWN INDICATION
     Route: 048
  5. DUOPA [Suspect]
     Active Substance: CARBIDOPA\LEVODOPA
  6. VITAMIN D3 [Concomitant]
     Active Substance: CHOLECALCIFEROL
     Indication: PRODUCT USED FOR UNKNOWN INDICATION
     Route: 048
  7. MYRBETRIQ [Concomitant]
     Active Substance: MIRABEGRON
     Indication: PRODUCT USED FOR UNKNOWN INDICATION
     Route: 048
  8. SERTRALINE [Concomitant]
     Active Substance: SERTRALINE HYDROCHLORIDE
     Indication: PRODUCT USED FOR UNKNOWN INDICATION
     Route: 048
  9. COENZYME Q10 [Concomitant]
     Active Substance: DIETARY SUPPLEMENT\UBIDECARENONE
     Indication: PRODUCT USED FOR UNKNOWN INDICATION
     Route: 048
  10. NORTHERA [Concomitant]
     Active Substance: DROXIDOPA
     Indication: PRODUCT USED FOR UNKNOWN INDICATION
     Route: 048
  11. MEMANTINE. [Concomitant]
     Active Substance: MEMANTINE
     Indication: PRODUCT USED FOR UNKNOWN INDICATION
     Route: 048
  12. DONEPEZIL. [Concomitant]
     Active Substance: DONEPEZIL
     Indication: PRODUCT USED FOR UNKNOWN INDICATION
     Route: 048

REACTIONS (22)
  - Transient ischaemic attack [Unknown]
  - Fall [Recovered/Resolved]
  - Dizziness [Recovered/Resolved with Sequelae]
  - Asthenia [Unknown]
  - Stoma site discharge [Unknown]
  - Fall [Recovered/Resolved]
  - Device use issue [Unknown]
  - Device difficult to use [Unknown]
  - Device use issue [Recovered/Resolved with Sequelae]
  - Device occlusion [Unknown]
  - Cardiac disorder [Unknown]
  - Loss of consciousness [Recovered/Resolved with Sequelae]
  - Unintentional medical device removal [Recovered/Resolved]
  - Device dislocation [Unknown]
  - Incorrect dose administered [Unknown]
  - Rib fracture [Recovered/Resolved]
  - Hypotension [Recovered/Resolved with Sequelae]
  - Confusional state [Unknown]
  - Device expulsion [Unknown]
  - Rib fracture [Recovered/Resolved]
  - Device issue [Unknown]
  - Medical device pain [Recovered/Resolved with Sequelae]

NARRATIVE: CASE EVENT DATE: 201912
